FAERS Safety Report 4409452-4 (Version None)
Quarter: 2004Q2

REPORT INFORMATION
  Report Type: 
  Country: None (occurrence: None)
  Receive Date: 20040618
  Receipt Date: 20040511
  Transmission Date: 20050107
  Serious: No
  Sender: FDA-Public Use
  Company Number: US-JNJFOC-20040502847

PATIENT
  Age: 40 Year
  Sex: Female
  Weight: 79.3795 kg

DRUGS (5)
  1. ORTHO EVRA [Suspect]
     Indication: MENORRHAGIA
     Dosage: 1 DOSE(S), 3 IN 4 WEEK, TRANSDERMAL
     Route: 062
     Dates: start: 20031001
  2. WELLBUTRIN [Concomitant]
  3. PRINIVIL [Concomitant]
  4. LIPATOR () ATORVASTATIN [Concomitant]
  5. TRACODONE () (TRAZODONE) [Concomitant]

REACTIONS (1)
  - METRORRHAGIA [None]
